FAERS Safety Report 10237160 (Version 1)
Quarter: 2014Q2

REPORT INFORMATION
  Report Type: Spontaneous
  Country: ZA (occurrence: ZA)
  Receive Date: 20140613
  Receipt Date: 20140613
  Transmission Date: 20141212
  Serious: Yes (Death)
  Sender: FDA-Public Use
  Company Number: ZA-B.I. PHARMACEUTICALS,INC./RIDGEFIELD-2014-BI-26580ZA

PATIENT
  Age: 51 Year
  Sex: Male

DRUGS (4)
  1. MOBIC [Suspect]
     Indication: PAIN
     Dosage: DOSE PER APPLICATION : 15MG/1.5ML
     Route: 065
     Dates: start: 20120502, end: 20120502
  2. MOBIC [Suspect]
     Indication: BRONCHITIS
  3. ANTIBIOTIC [Concomitant]
     Route: 065
  4. FENAMIN [Concomitant]
     Route: 065

REACTIONS (1)
  - Hypersensitivity [Fatal]
